FAERS Safety Report 5116870-8 (Version None)
Quarter: 2006Q3

REPORT INFORMATION
  Report Type: 
  Country: None (occurrence: None)
  Receive Date: 20060928
  Receipt Date: 20060919
  Transmission Date: 20061208
  Serious: Yes (Other)
  Sender: FDA-Public Use
  Company Number: 2006AP04395

PATIENT
  Age: 46 Year
  Sex: Male

DRUGS (2)
  1. IRESSA [Suspect]
     Indication: NON-SMALL CELL LUNG CANCER
     Route: 048
     Dates: start: 20060101
  2. ANTICONVULSANT [Suspect]
     Indication: CEREBRAL HAEMORRHAGE
     Dates: start: 20060701

REACTIONS (3)
  - CEREBRAL HAEMORRHAGE [None]
  - DEMENTIA [None]
  - MALAISE [None]
